FAERS Safety Report 5358440-2 (Version None)
Quarter: 2007Q2

REPORT INFORMATION
  Report Type: 
  Country: None (occurrence: None)
  Receive Date: 20070531
  Receipt Date: 20070405
  Transmission Date: 20071010
  Serious: No
  Sender: FDA-Public Use
  Company Number: 2007MP000177

PATIENT
  Age: 81 Year
  Sex: Male
  Weight: 76.2043 kg

DRUGS (1)
  1. DACOGEN [Suspect]
     Indication: MYELODYSPLASTIC SYNDROME
     Dosage: 38 MG;X1;IV
     Route: 042
     Dates: start: 20070405, end: 20070405

REACTIONS (1)
  - EXTRAVASATION [None]
